FAERS Safety Report 7354788-0 (Version None)
Quarter: 2011Q1

REPORT INFORMATION
  Report Type: 
  Country: None (occurrence: None)
  Receive Date: 20110316
  Receipt Date: 20100630
  Transmission Date: 20110831
  Serious: No
  Sender: FDA-Public Use
  Company Number: US-KINGPHARMUSA00001-K201000830

PATIENT
  Sex: Male
  Weight: 69.388 kg

DRUGS (5)
  1. LOPID [Concomitant]
     Indication: BLOOD TRIGLYCERIDES INCREASED
     Dosage: 600 MG, BID
     Route: 048
  2. ASPIRIN [Concomitant]
     Dosage: 81 MG, QD
     Route: 048
  3. ALTACE [Suspect]
     Dosage: 10 MG, QD
     Route: 048
     Dates: start: 20050101, end: 20090101
  4. ALTACE [Suspect]
     Indication: PROPHYLAXIS
     Dosage: 5 MG, QD
     Route: 048
     Dates: start: 20050101, end: 20050101
  5. FISH OIL [Concomitant]
     Dosage: 100 MG, BID
     Route: 048

REACTIONS (2)
  - HYPERSENSITIVITY [None]
  - LIP SWELLING [None]
